FAERS Safety Report 24746260 (Version 1)
Quarter: 2024Q4

REPORT INFORMATION
  Report Type: Spontaneous
  Country: US (occurrence: US)
  Receive Date: 20241218
  Receipt Date: 20241218
  Transmission Date: 20250115
  Serious: No
  Sender: ALK-ABELLO
  Company Number: US-ALK-ABELLO A/S-2024AA004482

PATIENT

DRUGS (10)
  1. JUGLANS REGIA POLLEN [Suspect]
     Active Substance: JUGLANS REGIA POLLEN
     Indication: Skin test
     Dosage: UNK
     Dates: start: 20241022
  2. ALLERGENIC EXTRACT- PEANUT ARACHIS HYPOGAEA [Suspect]
     Active Substance: ALLERGENIC EXTRACT- PEANUT ARACHIS HYPOGAEA
     Indication: Skin test
     Dosage: UNK
     Dates: start: 20241022
  3. TRIAMCINOLONE ACETONIDE [Concomitant]
     Active Substance: TRIAMCINOLONE ACETONIDE
     Indication: Product used for unknown indication
     Dosage: 0.1 PERCENT
     Route: 061
     Dates: start: 20230206
  4. PREDNISOLONE SODIUM PHOSPHATE [Concomitant]
     Active Substance: PREDNISOLONE SODIUM PHOSPHATE
     Indication: Product used for unknown indication
     Dosage: 3.5 MILLILITER
     Route: 048
  5. DIPHENHYDRAMINE [Concomitant]
     Active Substance: DIPHENHYDRAMINE
     Indication: Product used for unknown indication
     Dosage: 2.5 MILLILITER
     Route: 061
  6. CEPHALEXIN [Concomitant]
     Active Substance: CEPHALEXIN
     Indication: Product used for unknown indication
     Dosage: 4 MILLILITER,  250 MG/5 ML ORAL SUSPENSION
     Route: 055
     Dates: start: 20230206
  7. TACROLIMUS [Concomitant]
     Active Substance: TACROLIMUS
     Indication: Product used for unknown indication
     Dosage: 0.1 PERCENT
     Route: 048
     Dates: start: 20230206
  8. CHILDREN CLARITIN ALLERGY [Concomitant]
     Active Substance: LORATADINE
     Indication: Product used for unknown indication
     Dosage: 5 MILLIGRAM,  5 MG CHEWABLE TABLET: 1 TABLET EVERY MORNING
     Route: 048
  9. AUVI-Q [Concomitant]
     Active Substance: EPINEPHRINE
     Dosage: 0.1 MG/0.1 ML INJECTLON,AUTO-LNJECTOR
  10. AUVI-Q [Concomitant]
     Active Substance: EPINEPHRINE
     Dosage: 0.15 MG/0.15 ML AUTO-INJECTOR

REACTIONS (1)
  - False negative investigation result [Unknown]
